FAERS Safety Report 18988660 (Version 9)
Quarter: 2022Q3

REPORT INFORMATION
  Report Type: Report from Study
  Country: FR (occurrence: FR)
  Receive Date: 20210309
  Receipt Date: 20220711
  Transmission Date: 20221026
  Serious: Yes (Hospitalization)
  Sender: FDA-Public Use
  Company Number: FR-IPSEN GROUP, RESEARCH AND DEVELOPMENT-2020-25607

PATIENT

DRUGS (6)
  1. CABOZANTINIB [Suspect]
     Active Substance: CABOZANTINIB
     Indication: Renal cell carcinoma
     Dosage: 20 MG, QD
     Route: 048
     Dates: start: 20200928, end: 20201012
  2. CABOZANTINIB [Suspect]
     Active Substance: CABOZANTINIB
     Dosage: 30 MG, QD (20 MG 40 MG TAKEN ALTERNATIVELY)
     Route: 048
     Dates: start: 20201013, end: 20201019
  3. CABOZANTINIB [Suspect]
     Active Substance: CABOZANTINIB
     Dosage: 40 MG, QD
     Route: 048
     Dates: start: 20201020, end: 20201201
  4. CABOZANTINIB [Suspect]
     Active Substance: CABOZANTINIB
     Dosage: 30 MG, QD (20 MG 40 MG TAKEN ALTERNATIVELY)
     Route: 048
     Dates: start: 20201202, end: 20201217
  5. CABOZANTINIB [Suspect]
     Active Substance: CABOZANTINIB
     Dosage: 30 MG, QD (20 MG 40 MG TAKEN ALTERNATIVELY)
     Route: 048
     Dates: start: 20201231, end: 20210110
  6. CABOZANTINIB [Suspect]
     Active Substance: CABOZANTINIB
     Dosage: 33 MG, QD (CYCLE OF 2 DAYS AT 40 MG AND 1 DAY AT 20 MG)
     Route: 048
     Dates: start: 20210111, end: 20210426

REACTIONS (14)
  - Tachycardia [Recovered/Resolved]
  - Oedema peripheral [Not Recovered/Not Resolved]
  - Alopecia [Not Recovered/Not Resolved]
  - Proteinuria [Recovered/Resolved]
  - Asthenia [Not Recovered/Not Resolved]
  - Dysphonia [Not Recovered/Not Resolved]
  - Diarrhoea [Recovered/Resolved]
  - Visual acuity reduced [Recovered/Resolved]
  - Leukoencephalopathy [Not Recovered/Not Resolved]
  - Pain [Recovered/Resolved]
  - Off label use [Unknown]
  - Off label use [Unknown]
  - Off label use [Unknown]
  - Off label use [Unknown]

NARRATIVE: CASE EVENT DATE: 20201001
